FAERS Safety Report 10218818 (Version 1)
Quarter: 2014Q2

REPORT INFORMATION
  Report Type: Spontaneous
  Country: US (occurrence: US)
  Receive Date: 20140605
  Receipt Date: 20140605
  Transmission Date: 20141212
  Serious: Yes (Life-Threatening, Hospitalization)
  Sender: FDA-Public Use
  Company Number: US-SA-2014SA072670

PATIENT
  Age: 58 Year
  Sex: Male
  Weight: 87.7 kg

DRUGS (6)
  1. DESIPRAMINE HYDROCHLORIDE [Suspect]
     Indication: MANTLE CELL LYMPHOMA
     Route: 048
     Dates: start: 20140122, end: 20140129
  2. TEMSIROLIMUS [Suspect]
     Indication: MANTLE CELL LYMPHOMA
     Route: 042
     Dates: start: 20140218, end: 20140311
  3. TEMSIROLIMUS [Suspect]
     Indication: MANTLE CELL LYMPHOMA
     Dosage: WEEK 9/CYCLE 4
     Route: 042
     Dates: start: 20140314
  4. PREDNISONE [Suspect]
     Indication: MANTLE CELL LYMPHOMA
     Route: 048
     Dates: start: 20140226
  5. INSULIN [Concomitant]
     Indication: DIABETES MELLITUS
     Route: 058
     Dates: start: 20140301
  6. NOVOMIX [Concomitant]
     Indication: DIABETES MELLITUS
     Dosage: DOSE:30 UNIT(S)
     Route: 058
     Dates: start: 20140301

REACTIONS (1)
  - Sepsis [Recovered/Resolved]
